FAERS Safety Report 4745147-5 (Version None)
Quarter: 2005Q3

REPORT INFORMATION
  Report Type: 
  Country: None (occurrence: None)
  Receive Date: 20050815
  Receipt Date: 20050802
  Transmission Date: 20060218
  Serious: Yes (Death)
  Sender: FDA-Public Use
  Company Number: JP-JNJFOC-20050801753

PATIENT
  Age: 60 Year
  Sex: Female

DRUGS (2)
  1. LEUSTATIN [Suspect]
     Route: 065
  2. RITUXIMAB [Suspect]
     Route: 065

REACTIONS (2)
  - HEPATIC FAILURE [None]
  - HEPATITIS FULMINANT [None]
